FAERS Safety Report 4967298-2 (Version None)
Quarter: 2006Q2

REPORT INFORMATION
  Report Type: 
  Country: None (occurrence: None)
  Receive Date: 20060404
  Receipt Date: 20060321
  Transmission Date: 20061013
  Serious: Yes (Hospitalization)
  Sender: FDA-Public Use
  Company Number: 2006PV010586

PATIENT
  Age: 64 Year
  Sex: Male
  Weight: 74.8435 kg

DRUGS (22)
  1. BYETTA [Suspect]
     Indication: DIABETES MELLITUS NON-INSULIN-DEPENDENT
     Dosage: 5 MCG; BID; SC
     Route: 058
     Dates: start: 20060210, end: 20060224
  2. RITUXAN [Suspect]
     Indication: RHEUMATOID ARTHRITIS
     Dosage: IV
     Route: 042
  3. ZOCOR [Concomitant]
  4. ACTOS [Concomitant]
  5. NIASPAN [Concomitant]
  6. FOLTX [Concomitant]
  7. ALTACE [Concomitant]
  8. EFFEXOR XR [Concomitant]
  9. PROTONIX [Concomitant]
  10. TOPROL-XL [Concomitant]
  11. SYNTHROID [Concomitant]
  12. AMBIEN [Concomitant]
  13. IMDUR [Concomitant]
  14. ASPIRIN [Concomitant]
  15. PLAVIX [Concomitant]
  16. OMEGA 3 [Concomitant]
  17. PLETAL [Concomitant]
  18. LASIX [Concomitant]
  19. REQUIP [Concomitant]
  20. KLONOPIN [Concomitant]
  21. MOTRIN [Concomitant]
  22. RITUXAN [Concomitant]

REACTIONS (4)
  - ARTERIAL RESTENOSIS [None]
  - BLOOD CREATINE PHOSPHOKINASE INCREASED [None]
  - CORONARY ARTERY DISEASE [None]
  - MYOSITIS [None]
